FAERS Safety Report 9803801 (Version 4)
Quarter: 2014Q1

REPORT INFORMATION
  Report Type: Spontaneous
  Country: US (occurrence: None)
  Receive Date: 20140103
  Receipt Date: 20140225
  Transmission Date: 20141002
  Serious: Yes (Hospitalization, Other)
  Sender: FDA-Public Use
  Company Number: KAD201312-001758

PATIENT
  Age: 55 Year
  Sex: Male
  Weight: 93.4 kg

DRUGS (17)
  1. RIBAVIRIN (RIBAVIRIN) [Suspect]
     Dosage: 600 MG/DAY
     Route: 048
     Dates: start: 20131126, end: 20131219
  2. SOFOSBUVIR, LEDIPASVIR [Suspect]
     Dosage: 1 DF/DAY
     Route: 048
     Dates: start: 20131126
  3. XIFAXIN (RIFAXIMIN) [Concomitant]
  4. SPIRONOLACTONE (SPIRONOLACTONE) [Concomitant]
  5. AMMONIUM [Concomitant]
  6. THEREMS-M (CUPRIC SULFATE ANHYDROUS, ASCORBYL PALMITATE, BETA CAROTENE, BIOTIN, CALCIUM, CALCIUM PANTOTHENATE, CALCIUM SILICATE, CHLORIDE ION, CHOLECALCIFEROL, CHROMIC CHLORIDE, CUPRIC SULFATE ANHYDROUS, CYANOCOBALAMIN, FERROUS FUMARATE, FOLIC ACID, MAGN [Concomitant]
  7. URSODIOL (URSODEOXYCHOLIC ACID) [Concomitant]
  8. VITAMIN D [Concomitant]
  9. CIPROFLOXACIN HCL (CIPROFLOXACIN HCL) [Concomitant]
  10. FUROSEMIDE [Concomitant]
  11. GABAPENTIN [Concomitant]
  12. HYDROXYZINE HCL [Concomitant]
  13. LACTULOSE [Concomitant]
  14. MULTIVITAMIN [Concomitant]
  15. NADOLOL [Concomitant]
  16. RANITIDINE HCL [Concomitant]
  17. HEPATITIS B VACCINE (HEPATITIS B) [Concomitant]

REACTIONS (12)
  - Renal failure acute [None]
  - Pyrexia [None]
  - Chills [None]
  - Abdominal pain upper [None]
  - Dizziness [None]
  - Amylase increased [None]
  - Blood bilirubin increased [None]
  - Nausea [None]
  - Pancreatitis acute [None]
  - Drug interaction [None]
  - Peptic ulcer [None]
  - Haemolysis [None]
